FAERS Safety Report 21766276 (Version 1)
Quarter: 2022Q4

REPORT INFORMATION
  Report Type: Spontaneous
  Country: CA (occurrence: CA)
  Receive Date: 20221222
  Receipt Date: 20221222
  Transmission Date: 20230112
  Serious: Yes (Other)
  Sender: FDA-Public Use
  Company Number: CA-SAMSUNG BIOEPIS-SB-2022-32257

PATIENT
  Age: 67 Year
  Sex: Male
  Weight: 86 kg

DRUGS (2)
  1. ADALIMUMAB [Suspect]
     Active Substance: ADALIMUMAB
     Indication: Crohn^s disease
     Route: 058
  2. ADALIMUMAB [Suspect]
     Active Substance: ADALIMUMAB
     Dosage: UNKNOWN
     Route: 065

REACTIONS (13)
  - Pancreatic carcinoma [Unknown]
  - Angina pectoris [Unknown]
  - Asthenia [Unknown]
  - Decreased appetite [Unknown]
  - Eating disorder [Unknown]
  - Fatigue [Unknown]
  - Flatulence [Unknown]
  - Gait disturbance [Unknown]
  - Hypotension [Unknown]
  - Insomnia [Unknown]
  - Muscle spasms [Unknown]
  - Pain [Unknown]
  - Weight decreased [Unknown]
